FAERS Safety Report 17487419 (Version 1)
Quarter: 2020Q1

REPORT INFORMATION
  Report Type: Spontaneous
  Country: US (occurrence: US)
  Receive Date: 20200302
  Receipt Date: 20200302
  Transmission Date: 20200409
  Serious: No
  Sender: FDA-Public Use
  Company Number: None

PATIENT
  Age: 50 Year
  Sex: Female
  Weight: 81 kg

DRUGS (6)
  1. TIZANIDINE. [Concomitant]
     Active Substance: TIZANIDINE
  2. TOPIRAMATE. [Concomitant]
     Active Substance: TOPIRAMATE
  3. TYLENOL [Concomitant]
     Active Substance: ACETAMINOPHEN
  4. EMGALITY [Suspect]
     Active Substance: GALCANEZUMAB-GNLM
     Indication: MIGRAINE
     Dosage: ?          OTHER FREQUENCY:ONCE MONTHLY;?
     Route: 030
     Dates: start: 20200228, end: 20200228
  5. MOTRIN [Concomitant]
     Active Substance: IBUPROFEN
  6. NAPROXEN. [Concomitant]
     Active Substance: NAPROXEN

REACTIONS (11)
  - Fatigue [None]
  - Epistaxis [None]
  - Chapped lips [None]
  - Lip dry [None]
  - Pruritus [None]
  - Confusional state [None]
  - Peripheral swelling [None]
  - Product taste abnormal [None]
  - Urticaria [None]
  - Injection site swelling [None]
  - Lip swelling [None]

NARRATIVE: CASE EVENT DATE: 20200228
